FAERS Safety Report 5712802-X (Version None)
Quarter: 2008Q2

REPORT INFORMATION
  Report Type: 
  Country: None (occurrence: None)
  Receive Date: 20080422
  Receipt Date: 20080410
  Transmission Date: 20081010
  Serious: Yes (Other)
  Sender: FDA-Public Use
  Company Number: CA-BRISTOL-MYERS SQUIBB COMPANY-14158349

PATIENT
  Age: 8 Decade
  Sex: Female

DRUGS (2)
  1. AVAPRO [Suspect]
     Route: 048
  2. FUROSEMIDE [Concomitant]
     Dosage: FORM = TABLET.
     Route: 048

REACTIONS (2)
  - CARDIAC FAILURE [None]
  - PNEUMONIA [None]
